FAERS Safety Report 5958007-9 (Version None)
Quarter: 2008Q4

REPORT INFORMATION
  Report Type: 
  Country: None (occurrence: None)
  Receive Date: 20081119
  Receipt Date: 20081107
  Transmission Date: 20090506
  Serious: Yes (Other)
  Sender: FDA-Public Use
  Company Number: PHHY2008BR28375

PATIENT
  Sex: Male

DRUGS (1)
  1. FORASEQ [Suspect]
     Indication: LUNG DISORDER
     Dosage: 12/200 MCG, TWICE DAILY
     Dates: start: 20081001

REACTIONS (5)
  - DYSPNOEA [None]
  - FEELING ABNORMAL [None]
  - HYPERTENSION [None]
  - NERVOUSNESS [None]
  - PNEUMONIA [None]
